FAERS Safety Report 11866783 (Version 2)
Quarter: 2015Q4

REPORT INFORMATION
  Report Type: Spontaneous
  Country: CL (occurrence: CL)
  Receive Date: 20151224
  Receipt Date: 20151231
  Transmission Date: 20160305
  Serious: Yes (Hospitalization)
  Sender: FDA-Public Use
  Company Number: CL-ASTRAZENECA-2015SF28349

PATIENT
  Sex: Male

DRUGS (2)
  1. SEROQUEL [Suspect]
     Active Substance: QUETIAPINE FUMARATE
     Indication: SLEEP DISORDER
     Route: 048
     Dates: start: 201512, end: 201512
  2. SEROQUEL [Suspect]
     Active Substance: QUETIAPINE FUMARATE
     Indication: SLEEP DISORDER
     Route: 048
     Dates: start: 201512, end: 201512

REACTIONS (8)
  - Feeling abnormal [Unknown]
  - Tachycardia [Unknown]
  - Headache [Unknown]
  - Drug ineffective for unapproved indication [Unknown]
  - Blood pressure increased [Unknown]
  - Disorientation [Unknown]
  - Somnolence [Unknown]
  - Product use issue [Unknown]

NARRATIVE: CASE EVENT DATE: 201512
